FAERS Safety Report 4479184-5 (Version None)
Quarter: 2004Q4

REPORT INFORMATION
  Report Type: 
  Country: None (occurrence: None)
  Receive Date: 20041019
  Receipt Date: 20041019
  Transmission Date: 20050328
  Serious: Yes (Other)
  Sender: FDA-Public Use
  Company Number: None

PATIENT
  Sex: Female
  Weight: 70.7611 kg

DRUGS (1)
  1. IBUPROFEN [Suspect]
     Indication: AFTERBIRTH PAIN
     Dosage: 3XDAILY PO
     Route: 048
     Dates: start: 20040906, end: 20040909

REACTIONS (4)
  - CAESAREAN SECTION [None]
  - OEDEMA [None]
  - PREGNANCY [None]
  - WEIGHT DECREASED [None]
